FAERS Safety Report 7078862 (Version 5)
Quarter: 2014Q4

REPORT INFORMATION
  Report Type: Report from Study
  Country: US (occurrence: US)
  Receive Date: 20090812
  Receipt Date: 20141219
  Transmission Date: 20150529
  Serious: Yes (Other)
  Sender: FDA-Public Use
  Company Number: US-BIOGENIDEC-2009BI024633

PATIENT
  Age: 49 Year
  Sex: Male
  Weight: 78 kg

DRUGS (6)
  1. TYSABRI [Suspect]
     Active Substance: NATALIZUMAB
     Indication: MULTIPLE SCLEROSIS
     Route: 042
     Dates: start: 20090724, end: 20140903
  2. VITAMIN C [Concomitant]
     Active Substance: ASCORBIC ACID
  3. FISH OIL [Concomitant]
     Active Substance: FISH OIL
  4. CALCIUM WITH VITAMIN D [Concomitant]
     Active Substance: CALCIUM\VITAMIN D
  5. VITAMIN E [Concomitant]
     Active Substance: .ALPHA.-TOCOPHEROL
  6. SAW PALMETTO [Concomitant]
     Active Substance: SAW PALMETTO

REACTIONS (8)
  - Seizure [Unknown]
  - Weight decreased [Unknown]
  - Nocturia [Unknown]
  - Fatigue [Unknown]
  - Temperature intolerance [Unknown]
  - Asthenia [Unknown]
  - Complex partial seizures [Recovered/Resolved with Sequelae]
  - Rash [Unknown]

NARRATIVE: CASE EVENT DATE: 200907
